FAERS Safety Report 8561479 (Version 5)
Quarter: 2015Q3

REPORT INFORMATION
  Report Type: Spontaneous
  Country: FR (occurrence: FR)
  Receive Date: 20120515
  Receipt Date: 20150924
  Transmission Date: 20151125
  Serious: Yes (Death, Life-Threatening, Hospitalization)
  Sender: FDA-Public Use
  Company Number: FR-BIOGENIDEC-2012BI016276

PATIENT
  Age: 57 Year
  Sex: Female

DRUGS (7)
  1. TYSABRI [Suspect]
     Active Substance: NATALIZUMAB
     Indication: MULTIPLE SCLEROSIS
     Route: 042
     Dates: start: 20090306, end: 20120417
  2. NEURONTIN [Concomitant]
     Active Substance: GABAPENTIN
  3. KARDEGIC [Concomitant]
     Active Substance: ASPIRIN LYSINE
  4. RIVOTRIL [Concomitant]
     Active Substance: CLONAZEPAM
  5. METFORMINE [Concomitant]
     Active Substance: METFORMIN HYDROCHLORIDE
     Indication: TYPE 2 DIABETES MELLITUS
  6. VESICARE [Concomitant]
     Active Substance: SOLIFENACIN SUCCINATE
  7. THYROXINE [Concomitant]
     Active Substance: LEVOTHYROXINE

REACTIONS (1)
  - Progressive multifocal leukoencephalopathy [Fatal]

NARRATIVE: CASE EVENT DATE: 201204
